FAERS Safety Report 5416142-8 (Version None)
Quarter: 2007Q3

REPORT INFORMATION
  Report Type: 
  Country: None (occurrence: None)
  Receive Date: 20070718
  Receipt Date: 20070315
  Transmission Date: 20080115
  Serious: Yes (Other)
  Sender: FDA-Public Use
  Company Number: 2007021078

PATIENT
  Age: 60 Year
  Sex: Male

DRUGS (4)
  1. CELEBREX [Suspect]
     Indication: BACK INJURY
     Dosage: 100 MG (100 MG,1 IN 1 D)
     Dates: start: 20040101
  2. CELEBREX [Suspect]
     Indication: NECK INJURY
     Dosage: 100 MG (100 MG,1 IN 1 D)
     Dates: start: 20040101
  3. BEXTRA [Suspect]
     Indication: BACK INJURY
     Dosage: 20 MG (10 MG,2 IN 1 D); 40 MG (20 MG,2 IN 1 D)
     Dates: start: 20040101
  4. BEXTRA [Suspect]
     Indication: NECK INJURY
     Dosage: 20 MG (10 MG,2 IN 1 D); 40 MG (20 MG,2 IN 1 D)
     Dates: start: 20040101

REACTIONS (5)
  - DEPRESSION [None]
  - DIARRHOEA [None]
  - HEADACHE [None]
  - NASAL POLYPS [None]
  - SINUS DISORDER [None]
